FAERS Safety Report 19006230 (Version 5)
Quarter: 2021Q4

REPORT INFORMATION
  Report Type: Report from Study
  Country: CN (occurrence: CN)
  Receive Date: 20210315
  Receipt Date: 20211110
  Transmission Date: 20220303
  Serious: Yes (Hospitalization)
  Sender: FDA-Public Use
  Company Number: CN-ZAMBON-202100586COR

PATIENT
  Age: 69 Year
  Sex: Female
  Weight: 66.5 kg

DRUGS (15)
  1. SAFINAMIDE [Suspect]
     Active Substance: SAFINAMIDE
     Indication: Parkinson^s disease
     Route: 048
     Dates: start: 20210120, end: 20210204
  2. SAFINAMIDE [Suspect]
     Active Substance: SAFINAMIDE
     Route: 048
     Dates: start: 20210204, end: 20210511
  3. PRAMIPEXOLE DIHYDROCHLORIDE [Concomitant]
     Active Substance: PRAMIPEXOLE DIHYDROCHLORIDE
     Indication: Rapid eye movement sleep behaviour disorder
     Route: 048
     Dates: start: 20200720
  4. PRAMIPEXOLE DIHYDROCHLORIDE [Concomitant]
     Active Substance: PRAMIPEXOLE DIHYDROCHLORIDE
     Indication: Parkinson^s disease
  5. BENSERAZIDE HYDROCHLORIDE\LEVODOPA [Concomitant]
     Active Substance: BENSERAZIDE HYDROCHLORIDE\LEVODOPA
     Indication: Parkinson^s disease
     Route: 048
     Dates: start: 20181012
  6. GLYCERIN [Concomitant]
     Active Substance: GLYCERIN
     Indication: Constipation
     Route: 054
     Dates: start: 2012
  7. VALSARTAN [Concomitant]
     Active Substance: VALSARTAN
     Indication: Hypertension
     Route: 048
     Dates: start: 2012
  8. ATORVASTATIN CALCIUM [Concomitant]
     Active Substance: ATORVASTATIN CALCIUM
     Indication: Hyperlipidaemia
     Route: 048
     Dates: start: 20171228
  9. ALFACALCIDOL [Concomitant]
     Active Substance: ALFACALCIDOL
     Indication: Osteoporosis
     Route: 048
     Dates: start: 2017, end: 20210125
  10. ALENDRONATE SODIUM [Concomitant]
     Active Substance: ALENDRONATE SODIUM
     Indication: Osteoporosis
     Route: 048
     Dates: start: 20210118, end: 20210210
  11. GABAPENTIN [Concomitant]
     Active Substance: GABAPENTIN
     Indication: Facial spasm
     Route: 048
     Dates: start: 20210223, end: 20210315
  12. COBAMAMIDE [Concomitant]
     Active Substance: COBAMAMIDE
     Indication: Facial spasm
     Route: 048
     Dates: start: 20210223, end: 20210311
  13. VITAMIN B1 NATURAL [Concomitant]
     Indication: Facial spasm
     Route: 048
     Dates: start: 20210223, end: 20210415
  14. SODIUM HYALURONATE [Concomitant]
     Active Substance: HYALURONATE SODIUM
     Dosage: NOT PROVIDED
     Dates: start: 20210219, end: 20210223
  15. METHYLCOBALAMIN [Concomitant]
     Active Substance: METHYLCOBALAMIN
     Dates: start: 20210219, end: 20210222

REACTIONS (1)
  - Ventricular extrasystoles [Recovered/Resolved]

NARRATIVE: CASE EVENT DATE: 20210224
